FAERS Safety Report 9631286 (Version 1)
Quarter: 2013Q4

REPORT INFORMATION
  Report Type: Spontaneous
  Country: JP (occurrence: None)
  Receive Date: 20131016
  Receipt Date: 20131016
  Transmission Date: 20140711
  Serious: Yes (Other)
  Sender: FDA-Public Use
  Company Number: FK201304535

PATIENT
  Age: 80 Year
  Sex: Male

DRUGS (1)
  1. VANCOMYCIN (VANCOMYCIN) (VANCOMYCIN) [Suspect]
     Indication: STAPHYLOCOCCAL INFECTION
     Dates: start: 2007

REACTIONS (3)
  - Renal failure acute [None]
  - Device related sepsis [None]
  - Thrombosis in device [None]
